FAERS Safety Report 6394947-7 (Version None)
Quarter: 2009Q4

REPORT INFORMATION
  Report Type: 
  Country: None (occurrence: None)
  Receive Date: 20091009
  Receipt Date: 20090930
  Transmission Date: 20100525
  Serious: Yes (Other)
  Sender: FDA-Public Use
  Company Number: AU-PFIZER INC-2009259682

PATIENT
  Age: 52 Year

DRUGS (4)
  1. CADUET [Suspect]
     Indication: HYPERTENSION
     Dosage: 10/20MG, 1X/DAY
     Route: 048
     Dates: start: 20090729, end: 20090821
  2. CADUET [Suspect]
     Indication: HYPERCHOLESTEROLAEMIA
  3. ZOLOFT [Concomitant]
     Indication: DEPRESSION
     Dosage: 50 MG, 1X/DAY
     Route: 048
  4. PRAVACHOL [Concomitant]
     Dosage: 40 MG, UNK

REACTIONS (2)
  - MALAISE [None]
  - VITH NERVE PARALYSIS [None]
